FAERS Safety Report 7634604-X (Version None)
Quarter: 2011Q3

REPORT INFORMATION
  Report Type: 
  Country: None (occurrence: None)
  Receive Date: 20110725
  Receipt Date: 20110708
  Transmission Date: 20111222
  Serious: Yes (Death, Hospitalization)
  Sender: FDA-Public Use
  Company Number: US-AMGEN-US352790

PATIENT
  Age: 76 Year
  Sex: Male

DRUGS (4)
  1. IMMUNOGLOBULINS [Concomitant]
     Dosage: UNK UNK, UNK
     Dates: start: 20090612
  2. AMINOCAPROIC ACID [Concomitant]
  3. DECADRON [Concomitant]
  4. NPLATE [Suspect]
     Indication: IDIOPATHIC THROMBOCYTOPENIC PURPURA
     Dosage: 1 A?G/KG, UNK
     Route: 058
     Dates: start: 20090619, end: 20090619

REACTIONS (2)
  - RESPIRATORY FAILURE [None]
  - PULMONARY HAEMORRHAGE [None]
